FAERS Safety Report 14447240 (Version 1)
Quarter: 2018Q1

REPORT INFORMATION
  Report Type: Spontaneous
  Country: JP (occurrence: JP)
  Receive Date: 20180126
  Receipt Date: 20180126
  Transmission Date: 20180509
  Serious: Yes (Other)
  Sender: FDA-Public Use
  Company Number: JP-PFIZER INC-2018033167

PATIENT
  Age: 24 Year
  Sex: Male

DRUGS (5)
  1. MYCOPHENOLATE MOFETIL. [Concomitant]
     Active Substance: MYCOPHENOLATE MOFETIL
  2. TACROLIMUS. [Concomitant]
     Active Substance: TACROLIMUS
  3. INFLIXIMAB [Concomitant]
     Active Substance: INFLIXIMAB
  4. RITUXIMAB. [Concomitant]
     Active Substance: RITUXIMAB
  5. METHYLPREDNISOLONE SODIUM SUCCINATE. [Suspect]
     Active Substance: METHYLPREDNISOLONE SODIUM SUCCINATE
     Dosage: 2 MG/KG DAILY, PULSE THERAPY

REACTIONS (1)
  - Altered state of consciousness [Recovering/Resolving]
